FAERS Safety Report 7194410-X (Version None)
Quarter: 2010Q4

REPORT INFORMATION
  Report Type: 
  Country: None (occurrence: None)
  Receive Date: 20101223
  Receipt Date: 20101217
  Transmission Date: 20110411
  Serious: Yes (Hospitalization, Other)
  Sender: FDA-Public Use
  Company Number: US-ASTRAZENECA-2010SE54738

PATIENT
  Age: 72 Year
  Sex: Female

DRUGS (19)
  1. SYMBICORT [Suspect]
     Indication: ASTHMA
     Dosage: 320 MCG DAILY
     Route: 055
  2. SIMVASTATIN [Concomitant]
  3. PREDNISONE [Concomitant]
  4. GENERIC FLEXERIL [Concomitant]
  5. ASPIRIN [Concomitant]
  6. VENTOLOIN [Concomitant]
  7. THEOPHYLLINE [Concomitant]
  8. IPRATROPIUM BROMIDE [Concomitant]
     Dosage: AS NEEDED
  9. ALBUTEROL [Concomitant]
  10. BONIVA [Concomitant]
  11. SPIRIVA [Concomitant]
     Dosage: DAILY
  12. VITAMIN E SUPPLEMENT [Concomitant]
  13. OSCAL WITH D [Concomitant]
  14. CENTRUM SILVER [Concomitant]
  15. FUROSEMIDE [Concomitant]
  16. LISINOPRIL [Concomitant]
  17. PLAVIX [Concomitant]
  18. AVELOX [Concomitant]
  19. DIAZEPAM [Concomitant]

REACTIONS (7)
  - CEREBROVASCULAR ACCIDENT [None]
  - CHEST PAIN [None]
  - CONTUSION [None]
  - DYSPNOEA [None]
  - FALL [None]
  - MYOCARDIAL INFARCTION [None]
  - PNEUMONIA [None]
